FAERS Safety Report 24673893 (Version 2)
Quarter: 2024Q4

REPORT INFORMATION
  Report Type: Spontaneous
  Country: DE (occurrence: DE)
  Receive Date: 20241128
  Receipt Date: 20241212
  Transmission Date: 20250115
  Serious: Yes (Hospitalization, Other)
  Sender: REGENERON
  Company Number: DE-BAYER-2024A167212

PATIENT
  Age: 86 Year
  Sex: Male

DRUGS (2)
  1. EYLEA HD [Suspect]
     Active Substance: AFLIBERCEPT
     Indication: Product used for unknown indication
     Dosage: 8 MG, ONCE, SOLUTION FOR INJECTION, 114.3 MG/ML
     Dates: start: 20241021, end: 20241021
  2. EYLEA HD [Suspect]
     Active Substance: AFLIBERCEPT
     Dosage: 8 MG, ONCE, SOLUTION FOR INJECTION, 114.3 MG/ML
     Dates: start: 20241118, end: 20241118

REACTIONS (8)
  - Neovascular age-related macular degeneration [Unknown]
  - Visual impairment [Not Recovered/Not Resolved]
  - Vitreous opacities [Not Recovered/Not Resolved]
  - Vitreous opacities [Unknown]
  - Vision blurred [Not Recovered/Not Resolved]
  - Anterior chamber cell [Not Recovered/Not Resolved]
  - Anterior chamber flare [Unknown]
  - Retinal haemorrhage [Unknown]

NARRATIVE: CASE EVENT DATE: 20241118
